FAERS Safety Report 7250356-X (Version None)
Quarter: 2011Q1

REPORT INFORMATION
  Report Type: 
  Country: None (occurrence: None)
  Receive Date: 20110118
  Receipt Date: 20110105
  Transmission Date: 20110831
  Serious: Yes (Other)
  Sender: FDA-Public Use
  Company Number: 10000018123

PATIENT
  Age: 75 Year
  Sex: Male

DRUGS (9)
  1. ZOPICLONE (ZOPICLONE) (ZOPICLONE) [Concomitant]
  2. TAMSULOSIN (TAMSULOSIN) (TAMSULOSIN) [Concomitant]
  3. OMEPRAZOLE [Concomitant]
  4. MEMANTINE [Suspect]
     Dosage: 5 MG (5 MG, 1 IN 1 D) , ORAL
     Route: 048
  5. MEMANTINE [Suspect]
     Dosage: 10 MG (5 MG, 2 IN 1 D), ORAL
     Route: 048
     Dates: start: 20101122, end: 20101123
  6. TRIMETHOPRIM (TRIMETHOPRIM) ( TRIMETHOPRIM) [Concomitant]
  7. SIMVASTATIN [Concomitant]
  8. OLANZAPINE (OLANZAPINE) (OLANZAPINE) [Concomitant]
  9. IBUPROFEN [Concomitant]

REACTIONS (4)
  - HALLUCINATION, VISUAL [None]
  - TEARFULNESS [None]
  - DEPRESSED MOOD [None]
  - DEPRESSION [None]
